FAERS Safety Report 24954939 (Version 1)
Quarter: 2025Q1

REPORT INFORMATION
  Report Type: Spontaneous
  Country: CN (occurrence: CN)
  Receive Date: 20250211
  Receipt Date: 20250211
  Transmission Date: 20250409
  Serious: Yes (Other)
  Sender: ROCHE
  Company Number: CN-ROCHE-10000200938

PATIENT
  Age: 56 Year
  Sex: Female
  Weight: 61.5 kg

DRUGS (12)
  1. PERTUZUMAB [Suspect]
     Active Substance: PERTUZUMAB
     Indication: Invasive ductal breast carcinoma
     Route: 042
     Dates: start: 20241231
  2. PERTUZUMAB [Suspect]
     Active Substance: PERTUZUMAB
     Indication: Breast cancer
  3. PERTUZUMAB [Suspect]
     Active Substance: PERTUZUMAB
     Indication: Uterine leiomyoma
  4. TRASTUZUMAB [Suspect]
     Active Substance: TRASTUZUMAB
     Indication: Invasive ductal breast carcinoma
     Route: 042
     Dates: start: 20241231
  5. TRASTUZUMAB [Suspect]
     Active Substance: TRASTUZUMAB
     Indication: Breast cancer
  6. TRASTUZUMAB [Suspect]
     Active Substance: TRASTUZUMAB
     Indication: Uterine leiomyoma
  7. CARBOPLATIN [Suspect]
     Active Substance: CARBOPLATIN
     Indication: Invasive ductal breast carcinoma
     Route: 042
     Dates: start: 20241231
  8. CARBOPLATIN [Suspect]
     Active Substance: CARBOPLATIN
     Indication: Breast cancer
  9. CARBOPLATIN [Suspect]
     Active Substance: CARBOPLATIN
     Indication: Uterine leiomyoma
  10. PACLITAXEL [Suspect]
     Active Substance: PACLITAXEL
     Indication: Invasive ductal breast carcinoma
     Route: 042
     Dates: start: 20241231
  11. PACLITAXEL [Suspect]
     Active Substance: PACLITAXEL
     Indication: Breast cancer
  12. PACLITAXEL [Suspect]
     Active Substance: PACLITAXEL
     Indication: Uterine leiomyoma

REACTIONS (1)
  - Myelosuppression [Unknown]

NARRATIVE: CASE EVENT DATE: 20250107
